FAERS Safety Report 15282564 (Version 3)
Quarter: 2018Q3

REPORT INFORMATION
  Report Type: Spontaneous
  Country: DE (occurrence: DE)
  Receive Date: 20180816
  Receipt Date: 20180827
  Transmission Date: 20181010
  Serious: Yes (Other)
  Sender: FDA-Public Use
  Company Number: DE-BEH-2018093708

PATIENT
  Age: 26 Year
  Sex: Female
  Weight: 64 kg

DRUGS (2)
  1. HIZENTRA [Suspect]
     Active Substance: HUMAN IMMUNOGLOBULIN G
     Indication: HYPOGAMMAGLOBULINAEMIA
     Dosage: 30 ML/2.5 H, QW
     Route: 058
     Dates: start: 20170622
  2. HIZENTRA [Suspect]
     Active Substance: HUMAN IMMUNOGLOBULIN G
     Dosage: 30 ML/2.5, BIW
     Route: 058

REACTIONS (1)
  - Headache [Not Recovered/Not Resolved]
